FAERS Safety Report 5409261-3 (Version None)
Quarter: 2007Q3

REPORT INFORMATION
  Report Type: 
  Country: None (occurrence: None)
  Receive Date: 20070809
  Receipt Date: 20070802
  Transmission Date: 20080115
  Serious: Yes (Other)
  Sender: FDA-Public Use
  Company Number: PHEH2007US08488

PATIENT
  Age: 81 Year
  Sex: Female

DRUGS (5)
  1. ZELNORM [Suspect]
     Dosage: UNK, BID
     Dates: end: 20070515
  2. DYAZIDE [Concomitant]
  3. PREMPRO [Concomitant]
  4. SYNTHROID [Concomitant]
  5. XANAX [Concomitant]

REACTIONS (3)
  - ASTHENIA [None]
  - GAIT DISTURBANCE [None]
  - VOMITING [None]
